FAERS Safety Report 9645373 (Version 4)
Quarter: 2014Q3

REPORT INFORMATION
  Report Type: Spontaneous
  Country: JP (occurrence: None)
  Receive Date: 20131023
  Receipt Date: 20140908
  Transmission Date: 20150326
  Serious: Yes (Other)
  Sender: FDA-Public Use
  Company Number: 2013100082

PATIENT
  Age: 77 Year
  Sex: Female
  Weight: 50 kg

DRUGS (12)
  1. MUCODYNE [Suspect]
     Active Substance: CARBOCYSTEINE
     Indication: CHRONIC OBSTRUCTIVE PULMONARY DISEASE
     Dosage: 1500 MG (500 MG,3 IN 1 D)
     Route: 048
     Dates: start: 20031120
  2. LUPRAC [Suspect]
     Active Substance: TORSEMIDE
     Indication: OEDEMA PERIPHERAL
     Dosage: 4 MG, 1 IN 1 D
     Route: 048
     Dates: start: 20121004, end: 20130924
  3. THEO-DUR [Suspect]
     Active Substance: THEOPHYLLINE
     Indication: CHRONIC OBSTRUCTIVE PULMONARY DISEASE
     Dosage: 200 MG (100 MG, 2 IN 1 D)
     Route: 048
     Dates: start: 20031120, end: 20130923
  4. APLACE [Suspect]
     Active Substance: TROXIPIDE
     Indication: CHRONIC GASTRITIS
     Dosage: 300 MG (100 MG,3 IN 1 D)
     Route: 048
     Dates: start: 20070424, end: 20130924
  5. SPIRIVA [Suspect]
     Active Substance: TIOTROPIUM BROMIDE MONOHYDRATE
     Indication: CHRONIC OBSTRUCTIVE PULMONARY DISEASE
     Dosage: RESPIRATORY (INHALATION)
     Route: 055
     Dates: start: 20110705
  6. BAKTAR (SULFAMETHOXAZOLE TRIMETHOPRIM) [Concomitant]
  7. MAGLAX [Concomitant]
     Active Substance: MAGNESIUM OXIDE
  8. GASTROM [Suspect]
     Active Substance: ECABET
     Indication: CHRONIC GASTRITIS
     Dosage: 3 GM (1.5 GM,2 IN 1 D)
     Route: 048
     Dates: start: 20120809
  9. HOKUNALIN:TAPE [Suspect]
     Active Substance: TULOBUTEROL
     Indication: CHRONIC OBSTRUCTIVE PULMONARY DISEASE
     Route: 062
     Dates: start: 20031120
  10. URSO (URSODEOXYCHOLIC ACID) [Concomitant]
  11. EXJADE (DEFERASIROX) [Concomitant]
  12. NEXIUM [Suspect]
     Active Substance: ESOMEPRAZOLE MAGNESIUM
     Indication: GASTRIC ULCER
     Route: 048
     Dates: start: 20121101, end: 20130924

REACTIONS (4)
  - Lymphoma [None]
  - Aplasia pure red cell [None]
  - Platelet count decreased [None]
  - White blood cell disorder [None]

NARRATIVE: CASE EVENT DATE: 20130502
